FAERS Safety Report 15929170 (Version 1)
Quarter: 2019Q1

REPORT INFORMATION
  Report Type: Spontaneous
  Country: ES (occurrence: ES)
  Receive Date: 20190206
  Receipt Date: 20190206
  Transmission Date: 20190417
  Serious: Yes (Other)
  Sender: FDA-Public Use
  Company Number: ES-TEVA-2019-ES-1008139

PATIENT
  Age: 55 Year
  Sex: Female

DRUGS (3)
  1. PROCARBAZINA (651A) [Concomitant]
     Indication: MALIGNANT OLIGODENDROGLIOMA
     Dosage: 120 MG PER DAY FOR 14 DAYS IN EACH CYCLE
     Route: 048
     Dates: start: 201802, end: 201810
  2. LOMUSTINA (378A) [Suspect]
     Active Substance: LOMUSTINE
     Indication: MALIGNANT OLIGODENDROGLIOMA
     Dosage: DAY 1 OF THE CYCLE
     Route: 048
     Dates: start: 201802, end: 201810
  3. VINCRISTINA (809A) [Suspect]
     Active Substance: VINCRISTINE SULFATE
     Indication: MALIGNANT OLIGODENDROGLIOMA
     Dosage: 2 MG DAY 29 OF EACH CYCLE
     Route: 040
     Dates: start: 201802, end: 201810

REACTIONS (3)
  - Hyperreflexia [Unknown]
  - Diplopia [Unknown]
  - IIIrd nerve paresis [Unknown]

NARRATIVE: CASE EVENT DATE: 201810
